FAERS Safety Report 20131603 (Version 6)
Quarter: 2022Q4

REPORT INFORMATION
  Report Type: Spontaneous
  Country: JP (occurrence: JP)
  Receive Date: 20211130
  Receipt Date: 20221107
  Transmission Date: 20230112
  Serious: Yes (Hospitalization, Other)
  Sender: FDA-Public Use
  Company Number: JP-OTSUKA-2021_041015

PATIENT
  Age: 2 Year
  Sex: Male

DRUGS (18)
  1. BUSULFEX [Suspect]
     Active Substance: BUSULFAN
     Indication: Chemotherapy
     Dosage: 13.2 MG, QID
     Route: 041
     Dates: start: 20200824, end: 20200827
  2. BUSULFEX [Suspect]
     Active Substance: BUSULFAN
     Indication: Autologous haematopoietic stem cell transplant
  3. BUSULFEX [Suspect]
     Active Substance: BUSULFAN
     Indication: Premedication
  4. THIOTEPA [Suspect]
     Active Substance: THIOTEPA
     Indication: Chemotherapy
     Dosage: UNK
     Route: 065
  5. THIOTEPA [Suspect]
     Active Substance: THIOTEPA
     Indication: Autologous haematopoietic stem cell transplant
  6. THIOTEPA [Suspect]
     Active Substance: THIOTEPA
     Indication: Premedication
  7. CYCLOPHOSPHAMIDE [Suspect]
     Active Substance: CYCLOPHOSPHAMIDE
     Indication: Chemotherapy
     Dosage: UNK
     Route: 065
  8. CYCLOPHOSPHAMIDE [Suspect]
     Active Substance: CYCLOPHOSPHAMIDE
     Indication: Autologous haematopoietic stem cell transplant
  9. CYCLOPHOSPHAMIDE [Suspect]
     Active Substance: CYCLOPHOSPHAMIDE
     Indication: Neuroblastoma
  10. MELPHALAN [Suspect]
     Active Substance: MELPHALAN
     Indication: Chemotherapy
     Dosage: UNK
     Route: 065
  11. MELPHALAN [Suspect]
     Active Substance: MELPHALAN
     Indication: Autologous haematopoietic stem cell transplant
  12. MELPHALAN [Suspect]
     Active Substance: MELPHALAN
     Indication: Premedication
  13. VINCRISTINE SULFATE [Suspect]
     Active Substance: VINCRISTINE SULFATE
     Indication: Chemotherapy
     Dosage: UNK
     Route: 065
  14. VINCRISTINE SULFATE [Suspect]
     Active Substance: VINCRISTINE SULFATE
     Indication: Neuroblastoma
  15. PIRARUBICIN HYDROCHLORIDE [Suspect]
     Active Substance: PIRARUBICIN HYDROCHLORIDE
     Indication: Chemotherapy
     Dosage: UNK
     Route: 065
  16. PIRARUBICIN HYDROCHLORIDE [Suspect]
     Active Substance: PIRARUBICIN HYDROCHLORIDE
     Indication: Neuroblastoma
  17. CISPLATIN [Suspect]
     Active Substance: CISPLATIN
     Indication: Chemotherapy
     Dosage: UNK
     Route: 065
  18. CISPLATIN [Suspect]
     Active Substance: CISPLATIN
     Indication: Neuroblastoma

REACTIONS (4)
  - Chronic kidney disease [Recovering/Resolving]
  - Pericardial effusion [Unknown]
  - Thrombotic microangiopathy [Recovered/Resolved]
  - Product use in unapproved indication [Unknown]

NARRATIVE: CASE EVENT DATE: 20200901
